FAERS Safety Report 6252298-5 (Version None)
Quarter: 2009Q3

REPORT INFORMATION
  Report Type: 
  Country: None (occurrence: None)
  Receive Date: 20090701
  Receipt Date: 20060428
  Transmission Date: 20100115
  Serious: Yes (Hospitalization)
  Sender: FDA-Public Use
  Company Number: US-ROCHE-638777

PATIENT
  Sex: Male

DRUGS (9)
  1. ENFUVIRTIDE [Suspect]
     Route: 065
     Dates: start: 20031029, end: 20080814
  2. COMBIVIR [Concomitant]
     Dates: start: 20011226, end: 20031015
  3. KALETRA [Concomitant]
     Dates: start: 20031015, end: 20060101
  4. KALETRA [Concomitant]
     Dates: start: 20060101, end: 20080101
  5. VIDEX [Concomitant]
     Dates: start: 20031015, end: 20050831
  6. VIREAD [Concomitant]
     Dates: start: 20031015, end: 20061129
  7. ZERIT [Concomitant]
     Dates: start: 20050831, end: 20051026
  8. INVIRASE [Concomitant]
     Dates: start: 20060125, end: 20060427
  9. AMOXICILLIN [Concomitant]
     Dosage: STOP DATE: APRIL 2006.
     Dates: start: 20060421

REACTIONS (6)
  - EAR INFECTION STAPHYLOCOCCAL [None]
  - FACIAL PALSY [None]
  - HIV INFECTION [None]
  - OTITIS EXTERNA [None]
  - OTITIS EXTERNA BACTERIAL [None]
  - PSEUDOMONAS INFECTION [None]
